FAERS Safety Report 5655188-1 (Version None)
Quarter: 2008Q1

REPORT INFORMATION
  Report Type: 
  Country: None (occurrence: None)
  Receive Date: 20080219
  Receipt Date: 20071113
  Transmission Date: 20080703
  Serious: No
  Sender: FDA-Public Use
  Company Number: WAES 0711USA02990

PATIENT
  Age: 48 Year
  Sex: Male

DRUGS (4)
  1. JANUVIA [Suspect]
     Indication: DIABETES MELLITUS
     Dosage: 100 MG/DAILY/PO
     Route: 048
     Dates: start: 20071106, end: 20071106
  2. ACTOS [Concomitant]
  3. AUGMENTIN '125' [Concomitant]
  4. METFORMIN [Concomitant]

REACTIONS (2)
  - OTITIS MEDIA [None]
  - RASH [None]
